FAERS Safety Report 22074039 (Version 1)
Quarter: 2023Q1

REPORT INFORMATION
  Report Type: Spontaneous
  Country: US (occurrence: None)
  Receive Date: 20230307
  Receipt Date: 20230307
  Transmission Date: 20230417
  Serious: No
  Sender: FDA-Public Use
  Company Number: None

PATIENT
  Age: 40 Year
  Sex: Female

DRUGS (1)
  1. LORAZEPAM [Suspect]
     Active Substance: LORAZEPAM

REACTIONS (4)
  - Anxiety [None]
  - Intentional product use issue [None]
  - Drug effect less than expected [None]
  - Product size issue [None]

NARRATIVE: CASE EVENT DATE: 20230307
